FAERS Safety Report 18744245 (Version 3)
Quarter: 2021Q1

REPORT INFORMATION
  Report Type: Other
  Country: US (occurrence: US)
  Receive Date: 20210114
  Receipt Date: 20210208
  Transmission Date: 20210419
  Serious: Yes (Death)
  Sender: FDA-Public Use
  Company Number: US-ROCHE-2749763

PATIENT
  Age: 46 Year
  Sex: Male

DRUGS (3)
  1. LUCENTIS [Suspect]
     Active Substance: RANIBIZUMAB
  2. LUCENTIS [Suspect]
     Active Substance: RANIBIZUMAB
  3. LUCENTIS [Suspect]
     Active Substance: RANIBIZUMAB
     Indication: DIABETIC RETINOPATHY
     Dosage: EXPIRY DATE: 09/SEP/2021
     Route: 050

REACTIONS (1)
  - Death [Fatal]

NARRATIVE: CASE EVENT DATE: 20201218
